FAERS Safety Report 10247609 (Version 1)
Quarter: 2014Q2

REPORT INFORMATION
  Report Type: Spontaneous
  Country: GB (occurrence: None)
  Receive Date: 20140617
  Receipt Date: 20140617
  Transmission Date: 20141212
  Serious: Yes (Hospitalization, Other)
  Sender: FDA-Public Use
  Company Number: 2014-001698

PATIENT
  Age: 81 Year
  Sex: Male
  Weight: 80.8 kg

DRUGS (6)
  1. MESALAZINE [Suspect]
     Indication: IRRITABLE BOWEL SYNDROME
     Route: 048
     Dates: start: 2000, end: 20140530
  2. ALENDRONIC ACID (ALENDRONIC ACID) [Concomitant]
  3. AMLODIPINE (AMLODIPINE) [Concomitant]
  4. ATORASTATIN (ATORVASTATIN) [Concomitant]
  5. CALCICHEW D3 (CALCIUM CARBONATE, COLECACLIFEROL) [Concomitant]
  6. WARFARIN (WARFARIN) [Concomitant]

REACTIONS (1)
  - Myelodysplastic syndrome [None]
